FAERS Safety Report 10393136 (Version 2)
Quarter: 2014Q3

REPORT INFORMATION
  Report Type: Report from Study
  Country: GB (occurrence: GB)
  Receive Date: 20140819
  Receipt Date: 20140819
  Transmission Date: 20150326
  Serious: Yes (Hospitalization)
  Sender: FDA-Public Use
  Company Number: GB-EISAI INC-E7389-05343-CLI-GB

PATIENT
  Age: 66 Year
  Sex: Female
  Weight: 59 kg

DRUGS (1)
  1. ERIBULIN [Suspect]
     Active Substance: ERIBULIN
     Indication: COLON CANCER METASTATIC
     Route: 041
     Dates: start: 20140722

REACTIONS (5)
  - Cholecystitis acute [Recovering/Resolving]
  - Pyrexia [Unknown]
  - Febrile neutropenia [Recovered/Resolved]
  - Tachycardia [Unknown]
  - Stomatitis [Recovering/Resolving]

NARRATIVE: CASE EVENT DATE: 20140722
